FAERS Safety Report 6811212-1 (Version None)
Quarter: 2010Q2

REPORT INFORMATION
  Report Type: 
  Country: None (occurrence: None)
  Receive Date: 20100629
  Receipt Date: 20100629
  Transmission Date: 20101027
  Serious: Yes (Hospitalization)
  Sender: FDA-Public Use
  Company Number: None

PATIENT
  Age: 68 Year
  Sex: Female
  Weight: 63 kg

DRUGS (10)
  1. REMICADE [Suspect]
     Indication: RHEUMATOID ARTHRITIS
     Dosage: 300MG IV
     Route: 042
     Dates: start: 20090820
  2. REMICADE [Suspect]
     Indication: RHEUMATOID ARTHRITIS
     Dosage: 300MG IV
     Route: 042
     Dates: start: 20090917
  3. REMICADE [Suspect]
     Indication: RHEUMATOID ARTHRITIS
     Dosage: 300MG IV
     Route: 042
     Dates: start: 20091015
  4. REMICADE [Suspect]
     Indication: RHEUMATOID ARTHRITIS
     Dosage: 300MG IV
     Route: 042
     Dates: start: 20091215
  5. METHOTREXTE [Concomitant]
  6. FOLIC ACID [Concomitant]
  7. WARFARIN [Concomitant]
  8. OMEPRAZOLE [Concomitant]
  9. ATENOLOL [Concomitant]
  10. APAP TAB [Concomitant]

REACTIONS (5)
  - ERYTHEMA [None]
  - EYE SWELLING [None]
  - INFUSION RELATED REACTION [None]
  - OCULAR HYPERAEMIA [None]
  - RASH [None]
